FAERS Safety Report 6526954-5 (Version None)
Quarter: 2010Q1

REPORT INFORMATION
  Report Type: 
  Country: None (occurrence: None)
  Receive Date: 20100105
  Receipt Date: 20100104
  Transmission Date: 20100710
  Serious: Yes (Hospitalization)
  Sender: FDA-Public Use
  Company Number: US-B.I. PHARMACEUTICALS,INC./RIDGEFIELD-2009-BP-14095BP

PATIENT
  Age: 90 Year
  Sex: Female
  Weight: 69.5 kg

DRUGS (6)
  1. AGGRENOX [Suspect]
     Indication: TRANSIENT ISCHAEMIC ATTACK
     Dosage: 2 ANZ
     Route: 048
     Dates: start: 20091112, end: 20091207
  2. METHOTREXATE [Concomitant]
     Route: 048
  3. FOLIC ACID [Concomitant]
     Dosage: 1 MG
     Route: 048
  4. OMEPRAZOLE [Concomitant]
     Dosage: 20 MG
     Route: 048
  5. AMITRIPTYLINE [Concomitant]
     Dosage: 10 MG
     Route: 048
  6. ADALIMUMAB [Concomitant]
     Route: 058

REACTIONS (1)
  - TACHYCARDIA [None]
